FAERS Safety Report 8333531 (Version 2)
Quarter: 2013Q2

REPORT INFORMATION
  Report Type: Spontaneous
  Country: US (occurrence: None)
  Receive Date: 20111130
  Receipt Date: 20120531
  Transmission Date: 20140414
  Serious: Yes (Hospitalization, Other)
  Sender: FDA-Public Use
  Company Number: US201108001106

PATIENT
  Age: 59 Year
  Sex: Male
  Weight: 154.2 kg

DRUGS (9)
  1. BYETTA [Suspect]
     Indication: PRODUCT USED FOR UNKNOWN INDICATION
     Dates: start: 200605, end: 200909
  2. METFORMIN HYDROCHLORIDE [Concomitant]
  3. AVANDIA [Concomitant]
  4. HYDROCHLOROTHIAZIDE (HYDROCHLOROTHIAZIDE) [Concomitant]
  5. IBUPROFEN (IBUPROFEN) [Concomitant]
  6. WELLBUTRIN (IBUPROFEN HYDROCHLORIDE) [Concomitant]
  7. LISINOPRIL [Concomitant]
  8. VICODIN [Concomitant]
  9. CHANTIX (VARENICLINE TARTERATE) [Concomitant]

REACTIONS (4)
  - CHOLELITHIASIS [None]
  - PANCREATITIS ACUTE [None]
  - PANCREATIC PSEUDOCYST [None]
  - Renal failure [None]
